FAERS Safety Report 13512266 (Version 1)
Quarter: 2017Q2

REPORT INFORMATION
  Report Type: Spontaneous
  Country: US (occurrence: US)
  Receive Date: 20170504
  Receipt Date: 20170504
  Transmission Date: 20170830
  Serious: Yes (Disabling)
  Sender: FDA-Public Use
  Company Number: None

PATIENT
  Age: 60 Year
  Sex: Female
  Weight: 71.1 kg

DRUGS (9)
  1. VITAMIN K-2 [Concomitant]
  2. MULTIVITAMIN [Concomitant]
     Active Substance: VITAMINS
  3. VITAMIN D [Concomitant]
     Active Substance: CHOLECALCIFEROL
  4. CIPROFLOXCIN [Suspect]
     Active Substance: CIPROFLOXACIN
     Indication: URINARY TRACT INFECTION
     Dosage: ?          QUANTITY:14 TABLET(S);?RWICE A DAY ORAL
     Route: 048
     Dates: start: 20170204, end: 20170210
  5. 81MG ASPIRIN [Concomitant]
  6. SIMVISTATIN [Concomitant]
     Active Substance: SIMVASTATIN
  7. ARMOUR THYROID [Concomitant]
     Active Substance: THYROID, PORCINE
  8. COQ10 [Concomitant]
     Active Substance: UBIDECARENONE
  9. PROBIOTIC [Concomitant]
     Active Substance: PROBIOTICS NOS

REACTIONS (7)
  - Diplopia [None]
  - Depression [None]
  - Tendonitis [None]
  - Anxiety [None]
  - Prescribed overdose [None]
  - Hypoaesthesia [None]
  - Fungal infection [None]

NARRATIVE: CASE EVENT DATE: 20170208
